FAERS Safety Report 7102788-8 (Version None)
Quarter: 2010Q4

REPORT INFORMATION
  Report Type: 
  Country: None (occurrence: None)
  Receive Date: 20101115
  Receipt Date: 20090629
  Transmission Date: 20110411
  Serious: No
  Sender: FDA-Public Use
  Company Number: US-KINGPHARMUSA00001-K200900765

PATIENT
  Age: 61 Year
  Sex: Female
  Weight: 50.794 kg

DRUGS (7)
  1. LEVOXYL [Suspect]
     Indication: HYPOTHYROIDISM
     Dosage: 12.5 MCG, BIW
  2. LEVOXYL [Suspect]
     Dosage: 25 MCG, 5 X WEEK
  3. LEVOXYL [Suspect]
     Dosage: 12.5 MCG, QD
     Route: 048
     Dates: start: 20050920
  4. ACTONEL [Suspect]
     Indication: OSTEOPENIA
     Dosage: UNK
     Dates: start: 20041101, end: 20081001
  5. ACTONEL [Suspect]
     Dosage: UNK
     Dates: start: 20081001, end: 20090526
  6. ANTI-ACNE PREPARATIONS [Concomitant]
     Indication: ACNE
  7. PREMPRO [Concomitant]
     Indication: HORMONE REPLACEMENT THERAPY
     Dosage: UNK
     Dates: start: 20020701

REACTIONS (1)
  - BONE DENSITY DECREASED [None]
